FAERS Safety Report 9332689 (Version 2)
Quarter: 2013Q3

REPORT INFORMATION
  Report Type: Report from Study
  Country: US (occurrence: US)
  Receive Date: 20130606
  Receipt Date: 20130709
  Transmission Date: 20140515
  Serious: Yes (Hospitalization, Other)
  Sender: FDA-Public Use
  Company Number: PHEH2013US011867

PATIENT
  Age: 32 Year
  Sex: Female
  Weight: 49.89 kg

DRUGS (3)
  1. GILENYA [Suspect]
     Indication: MULTIPLE SCLEROSIS
     Dosage: 0.5 MG, QD
     Route: 048
     Dates: start: 20130514
  2. PREDNISONE [Suspect]
     Route: 048
     Dates: start: 20130414, end: 20130622
  3. SOLU MEDROL [Suspect]
     Route: 042

REACTIONS (6)
  - Psychomotor hyperactivity [Recovering/Resolving]
  - Insomnia [Recovering/Resolving]
  - Motor dysfunction [Recovering/Resolving]
  - Aphagia [Recovering/Resolving]
  - Aphasia [Recovering/Resolving]
  - Malaise [Recovering/Resolving]
